FAERS Safety Report 7197612-1 (Version None)
Quarter: 2010Q4

REPORT INFORMATION
  Report Type: 
  Country: None (occurrence: None)
  Receive Date: 20101213
  Receipt Date: 20100304
  Transmission Date: 20110411
  Serious: Yes (Other)
  Sender: FDA-Public Use
  Company Number: 2010AP000351

PATIENT
  Age: 98 Year
  Sex: Female

DRUGS (14)
  1. OMEPRAZOLE [Suspect]
     Indication: GASTROOESOPHAGEAL REFLUX DISEASE
     Dosage: 10 MG; QD
  2. ASPIRIN [Concomitant]
  3. NICORANDIL (NICORANDIL) [Concomitant]
  4. ISOSORBIDE MONONITRATE [Concomitant]
  5. SIMVASTATIN [Concomitant]
  6. BISOPROLOL (BISOPROLOL) [Concomitant]
  7. LEVOTHYROXINE SODIUM [Concomitant]
  8. GLIPIZIDE [Concomitant]
  9. CALCIUM CARBONATE [Concomitant]
  10. COLECALCIFEROL (COLECALCIFEROL) [Concomitant]
  11. TYPE 2 DIABETES MELLITUS [Concomitant]
  12. HYPOTHYROIDISM [Concomitant]
  13. FEMUR FRACTURE [Concomitant]
  14. FALL [Concomitant]

REACTIONS (2)
  - GAIT DISTURBANCE [None]
  - HYPONATRAEMIA [None]
